FAERS Safety Report 7864166-3 (Version None)
Quarter: 2011Q4

REPORT INFORMATION
  Report Type: 
  Country: None (occurrence: None)
  Receive Date: 20111028
  Receipt Date: 20111024
  Transmission Date: 20120403
  Serious: Yes (Hospitalization, Other)
  Sender: FDA-Public Use
  Company Number: JP-PFIZER INC-2011258432

PATIENT
  Age: 86 Year
  Sex: Female

DRUGS (3)
  1. LYRICA [Suspect]
     Indication: PAIN
     Dosage: 75 MG DAILY
     Route: 048
     Dates: start: 20110328, end: 20110509
  2. LASIX [Concomitant]
     Dosage: UNK
  3. LOSARTAN POTASSIUM [Concomitant]
     Dosage: UNK

REACTIONS (4)
  - GASTRIC ULCER [None]
  - OESOPHAGEAL ULCER [None]
  - ANAEMIA [None]
  - CARDIAC FAILURE [None]
